FAERS Safety Report 16260478 (Version 2)
Quarter: 2019Q2

REPORT INFORMATION
  Report Type: Not Available
  Country: US (occurrence: US)
  Receive Date: 20190501
  Receipt Date: 20190515
  Transmission Date: 20190711
  Serious: Yes (Hospitalization, Other)
  Sender: FDA-Public Use
  Company Number: US-NEUROCRINE BIOSCIENCES INC.-2019NBI01029

PATIENT
  Sex: Male

DRUGS (23)
  1. PROLIXIN [Concomitant]
     Active Substance: FLUPHENAZINE HYDROCHLORIDE
  2. TRULICITY [Concomitant]
     Active Substance: DULAGLUTIDE
     Dosage: EVERY TUESDAY
     Route: 058
  3. VITAMIN B6 [Concomitant]
     Active Substance: PYRIDOXINE HYDROCHLORIDE
     Route: 048
  4. GABAPENTIN. [Concomitant]
     Active Substance: GABAPENTIN
     Dosage: 1 CAPSULE AT BEDTIME
     Route: 048
  5. DIVALOPROEX ER [Concomitant]
     Dosage: 1 TABLET IN THE MORNING AND 2 TABLETS IN THE EVENING AT BEDTIME
     Route: 048
  6. GLIPIZIDE XL [Concomitant]
     Active Substance: GLIPIZIDE
  7. METFORMIN [Concomitant]
     Active Substance: METFORMIN HYDROCHLORIDE
     Indication: DIABETES MELLITUS
     Route: 048
  8. HYDROCHLOROTHIAZIDE. [Concomitant]
     Active Substance: HYDROCHLOROTHIAZIDE
     Route: 048
  9. DUTASTERIDE. [Concomitant]
     Active Substance: DUTASTERIDE
     Route: 048
  10. ASPIRIN. [Concomitant]
     Active Substance: ASPIRIN
     Dosage: WITH FOOD
     Route: 048
  11. QUETIAPINE XR [Concomitant]
     Active Substance: QUETIAPINE
     Route: 048
  12. VITAMIN B12 [Concomitant]
     Active Substance: CYANOCOBALAMIN
     Route: 048
  13. ESCITALOPRAM [Concomitant]
     Active Substance: ESCITALOPRAM OXALATE
     Route: 048
  14. SENNA S [Concomitant]
     Active Substance: DOCUSATE SODIUM\SENNA LEAF
     Dosage: 8.6-50MG
     Route: 048
  15. TAMSULOSIN [Concomitant]
     Active Substance: TAMSULOSIN
     Route: 048
  16. CARVEDILOL. [Concomitant]
     Active Substance: CARVEDILOL
     Indication: HYPERTENSION
     Route: 048
  17. LEVEMIR [Concomitant]
     Active Substance: INSULIN DETEMIR
     Indication: DIABETES MELLITUS
     Route: 058
  18. MUPIROCIN. [Concomitant]
     Active Substance: MUPIROCIN
     Indication: TINEA CRURIS
     Dosage: APPLIED TO AFFECTED AREA (BY THIGHS ON SCROTUM) ONCE OR TWICE A WEEK
  19. INGREZZA [Suspect]
     Active Substance: VALBENAZINE
     Indication: TARDIVE DYSKINESIA
     Route: 048
     Dates: start: 20180821
  20. BENZTROPINE. [Concomitant]
     Active Substance: BENZTROPINE
     Dosage: 1MG BETWEEN 7:30AM TO 8:00AM AND 1MG BETWEEN 7:30PM TO 8:00PM
     Route: 048
  21. CELECOXIB. [Concomitant]
     Active Substance: CELECOXIB
     Dosage: TAKEN 6 HOURS AFTER ASPIRIN
     Route: 048
  22. GABAPENTIN. [Concomitant]
     Active Substance: GABAPENTIN
     Dosage: 1 CAPSULE IN THE MORNING
     Route: 048
  23. MULTIVITAMIN 37.5-28.5-400-5 [Concomitant]
     Dosage: 37.5-28.5-400-5 MG
     Route: 048

REACTIONS (7)
  - Fall [Recovered/Resolved]
  - Lower limb fracture [Recovering/Resolving]
  - Hip arthroplasty [Recovering/Resolving]
  - Fall [Recovered/Resolved]
  - Tremor [Recovering/Resolving]
  - Loss of consciousness [Recovered/Resolved]
  - Dizziness [Unknown]

NARRATIVE: CASE EVENT DATE: 2019
